FAERS Safety Report 18615167 (Version 5)
Quarter: 2021Q1

REPORT INFORMATION
  Report Type: Report from Study
  Country: US (occurrence: US)
  Receive Date: 20201215
  Receipt Date: 20210323
  Transmission Date: 20210419
  Serious: Yes (Hospitalization)
  Sender: FDA-Public Use
  Company Number: US-ROCHE-2724626

PATIENT
  Age: 48 Year
  Sex: Male
  Weight: 130 kg

DRUGS (8)
  1. OCRELIZUMAB. [Suspect]
     Active Substance: OCRELIZUMAB
     Indication: RELAPSING MULTIPLE SCLEROSIS
     Dosage: DOSE CONCENTRATION WAS 40 MG/ML. TOTAL VOLUME PRIOR SAE 30 ML?THE START DATE OF MOST RECENT DOSE OF
     Route: 058
     Dates: start: 20200511
  2. PRAVASTATIN. [Concomitant]
     Active Substance: PRAVASTATIN
     Indication: HYPERLIPIDAEMIA
     Route: 048
     Dates: start: 20151001
  3. TYLENOL [Concomitant]
     Active Substance: ACETAMINOPHEN
     Indication: MULTIPLE SCLEROSIS
     Route: 048
     Dates: start: 20201102, end: 20201102
  4. LOVENOX [Concomitant]
     Active Substance: ENOXAPARIN SODIUM
     Indication: THROMBOSIS PROPHYLAXIS
     Route: 058
     Dates: start: 20201126, end: 20201129
  5. PREDNISONE. [Concomitant]
     Active Substance: PREDNISONE
     Indication: MULTIPLE SCLEROSIS
     Route: 048
     Dates: start: 20201102, end: 20201102
  6. RHUPH20 [Suspect]
     Active Substance: HYALURONIDASE (HUMAN RECOMBINANT)
     Indication: RELAPSING MULTIPLE SCLEROSIS
     Dosage: THE START DATE OF MOST RECENT DOSE OF STUDY DRUG PRIOR TO SAE WAS ON 02/NOV/2020?ADMINISTERED IN A 2
     Route: 058
     Dates: start: 20200511
  7. LISINOPRIL. [Concomitant]
     Active Substance: LISINOPRIL
     Indication: HYPERTENSION
     Route: 048
     Dates: start: 20151001
  8. LORATADINE. [Concomitant]
     Active Substance: LORATADINE
     Indication: MULTIPLE SCLEROSIS
     Route: 048
     Dates: start: 20201102, end: 20201102

REACTIONS (1)
  - COVID-19 pneumonia [Not Recovered/Not Resolved]

NARRATIVE: CASE EVENT DATE: 20201126
